FAERS Safety Report 8173525-3 (Version None)
Quarter: 2012Q1

REPORT INFORMATION
  Report Type: 
  Country: None (occurrence: None)
  Receive Date: 20120223
  Receipt Date: 20110509
  Transmission Date: 20120608
  Serious: Yes (Death)
  Sender: FDA-Public Use
  Company Number: GB-024960

PATIENT

DRUGS (2)
  1. BUSULFAN [Suspect]
     Indication: STEM CELL TRANSPLANT
  2. ANTI-THYMOCYTE GLOBULIN EQUINE NOS [Concomitant]

REACTIONS (1)
  - ADENOVIRUS INFECTION [None]
